FAERS Safety Report 8415507-X (Version None)
Quarter: 2012Q2

REPORT INFORMATION
  Report Type: 
  Country: None (occurrence: None)
  Receive Date: 20120606
  Receipt Date: 20120525
  Transmission Date: 20120825
  Serious: Yes (Hospitalization)
  Sender: FDA-Public Use
  Company Number: FR-SANOFI-AVENTIS-2012SA037294

PATIENT
  Age: 95 Year
  Sex: Female

DRUGS (14)
  1. NEBIVOLOL [Concomitant]
     Route: 048
     Dates: end: 20120424
  2. DITROPAN [Suspect]
     Dosage: STRENGTH: 5 MG
     Route: 048
     Dates: start: 20120427, end: 20120430
  3. NITRAZEPAM [Concomitant]
     Route: 048
     Dates: end: 20120424
  4. ISOSORBIDE DINITRATE [Concomitant]
     Dosage: DOSAGE: 1 MG BY HOUR
     Route: 042
     Dates: start: 20120424, end: 20120426
  5. LASIX [Suspect]
     Route: 048
     Dates: start: 20120424
  6. NIFEDIPINE [Concomitant]
     Route: 048
     Dates: end: 20120427
  7. ASPIRIN [Concomitant]
     Route: 048
  8. POTASSIUM CHLORIDE [Concomitant]
     Route: 048
     Dates: end: 20120430
  9. HALDOL [Suspect]
     Route: 048
     Dates: start: 20120429, end: 20120429
  10. DIGOXIN [Suspect]
     Route: 048
     Dates: start: 20120424, end: 20120430
  11. CIPROFLOXACIN HYDROCHLORIDE [Suspect]
     Dosage: STRENGTH: 500 MG
     Route: 048
     Dates: start: 20120425, end: 20120430
  12. NITROGLYCERIN [Suspect]
     Dosage: FORM: PATCH; STRENGTH: 15 MG/24 H
     Route: 062
     Dates: start: 20120428, end: 20120430
  13. BISOPROLOL FUMARATE [Concomitant]
     Route: 048
     Dates: start: 20120424
  14. LOVENOX [Concomitant]
     Route: 058
     Dates: end: 20120430

REACTIONS (1)
  - CONVULSION [None]
